FAERS Safety Report 16566902 (Version 1)
Quarter: 2019Q3

REPORT INFORMATION
  Report Type: Spontaneous
  Country: GB (occurrence: GB)
  Receive Date: 20190712
  Receipt Date: 20190712
  Transmission Date: 20191004
  Serious: Yes (Disabling, Other)
  Sender: FDA-Public Use
  Company Number: GB-MYLANLABS-2019M1062313

PATIENT
  Age: 63 Year
  Sex: Male
  Weight: 50.8 kg

DRUGS (2)
  1. SALBUTAMOL [Suspect]
     Active Substance: ALBUTEROL
     Indication: DYSPNOEA
     Dosage: 1 DOSAGE FORM, QD
     Route: 055
     Dates: start: 20170616, end: 201901
  2. BISOPROLOL FUMARATE. [Concomitant]
     Active Substance: BISOPROLOL FUMARATE
     Dosage: 1.25 MILLIGRAM

REACTIONS (2)
  - Anxiety [Unknown]
  - Depression [Not Recovered/Not Resolved]
